FAERS Safety Report 9537755 (Version 5)
Quarter: 2014Q1

REPORT INFORMATION
  Report Type: Spontaneous
  Country: FR (occurrence: FR)
  Receive Date: 20130919
  Receipt Date: 20140220
  Transmission Date: 20141002
  Serious: Yes (Congenital Anomaly, Other)
  Sender: FDA-Public Use
  Company Number: FR-GILEAD-2013-0083623

PATIENT
  Age: 3 Month
  Sex: Male
  Weight: 3.12 kg

DRUGS (1)
  1. VIREAD [Suspect]
     Indication: HEPATITIS B
     Dosage: 245 MG, QD
     Route: 064

REACTIONS (3)
  - Heart disease congenital [Unknown]
  - Ventricular hypoplasia [Unknown]
  - Congenital tricuspid valve atresia [Recovered/Resolved with Sequelae]
